FAERS Safety Report 11176474 (Version 1)
Quarter: 2015Q2

REPORT INFORMATION
  Report Type: Spontaneous
  Country: US (occurrence: US)
  Receive Date: 20150610
  Receipt Date: 20150610
  Transmission Date: 20150821
  Serious: No
  Sender: FDA-Public Use
  Company Number: US-TEVA-554390USA

PATIENT
  Age: 52 Year
  Sex: Male

DRUGS (2)
  1. TEMOZOLOMIDE. [Suspect]
     Active Substance: TEMOZOLOMIDE
     Dosage: DAYS 1-5 EVERY 28 DAYS
     Route: 048
     Dates: start: 20150311
  2. TEMOZOLOMIDE. [Suspect]
     Active Substance: TEMOZOLOMIDE
     Dosage: DAYS 1-5 EVERY 28 DAYS
     Route: 048
     Dates: start: 20150311

REACTIONS (1)
  - Nausea [Unknown]
